FAERS Safety Report 8248755-2 (Version None)
Quarter: 2012Q1

REPORT INFORMATION
  Report Type: 
  Country: None (occurrence: None)
  Receive Date: 20120331
  Receipt Date: 20120328
  Transmission Date: 20120608
  Serious: Yes (Other)
  Sender: FDA-Public Use
  Company Number: PHHY2012DE017759

PATIENT

DRUGS (3)
  1. DEXAMETHASONE [Concomitant]
     Indication: METASTASES TO CENTRAL NERVOUS SYSTEM
     Dosage: !-4 MG PER DAY
     Route: 048
  2. AFINITOR [Suspect]
     Indication: RENAL CELL CARCINOMA
     Dosage: 5 MG, DAILY
     Route: 048
     Dates: start: 20100801, end: 20110901
  3. LYRICA [Concomitant]
     Route: 048

REACTIONS (2)
  - IRON METABOLISM DISORDER [None]
  - IRON DEFICIENCY [None]
